FAERS Safety Report 6403694-4 (Version None)
Quarter: 2009Q4

REPORT INFORMATION
  Report Type: 
  Country: None (occurrence: None)
  Receive Date: 20091016
  Receipt Date: 20091006
  Transmission Date: 20100525
  Serious: Yes (Other)
  Sender: FDA-Public Use
  Company Number: US-ELI_LILLY_AND_COMPANY-US200910001852

PATIENT
  Sex: Female
  Weight: 49.887 kg

DRUGS (17)
  1. ALIMTA [Suspect]
     Indication: LUNG ADENOCARCINOMA
     Dosage: 750 MG, EVERY 21 DAYS
     Route: 042
     Dates: start: 20090318, end: 20090722
  2. CARBOPLATIN [Concomitant]
     Indication: LUNG ADENOCARCINOMA
     Dosage: 5 AUC EVERY 21 DAYS
     Dates: start: 20090611
  3. FOLIC ACID [Concomitant]
     Dosage: 1 MG, DAILY (1/D)
     Dates: start: 20090316
  4. VITAMIN B-12 [Concomitant]
  5. DECADRON                                /CAN/ [Concomitant]
     Dosage: 1 D/F, 2/D THE DAY BEFORE , DAY OF AND DAY AFTER CHEMOTHERAPY
     Route: 048
     Dates: start: 20090316
  6. ZOMETA [Concomitant]
  7. LISINOPRIL [Concomitant]
     Dosage: 20 MG, DAILY (1/D)
  8. ALBUTEROL [Concomitant]
     Dosage: UNK, AS NEEDED
  9. PILOCARPINE HYDROCHLORIDE [Concomitant]
     Dosage: UNK, 2/D
     Route: 047
  10. COMBIVENT [Concomitant]
     Dosage: UNK, AS NEEDED
     Dates: start: 20080731
  11. PRAVACHOL [Concomitant]
     Dosage: 1 D/F, DAILY (1/D)
     Dates: start: 20080904
  12. LIPITOR [Concomitant]
     Indication: CAROTID ARTERY DISEASE
     Dosage: 10 MG, DAILY (1/D)
  13. ULTRAM [Concomitant]
     Dosage: 50 MG, AS NEEDED EVERY 6 HRS.
     Route: 048
     Dates: start: 20090223
  14. ULTRAM [Concomitant]
     Dosage: 100 MG, AS NEEDED EVERY 6 HRS
     Route: 048
     Dates: start: 20090223
  15. MIRALAX [Concomitant]
     Dosage: 2 D/F, DAILY (1/D)
     Dates: start: 20090715
  16. SYMBICORT [Concomitant]
     Dosage: 1 D/F, 2/D
     Route: 055
     Dates: start: 20090722
  17. INFED [Concomitant]
     Indication: IRON DEFICIENCY ANAEMIA
     Dosage: 500 MG, UNK
     Route: 042

REACTIONS (14)
  - ALANINE AMINOTRANSFERASE DECREASED [None]
  - ANAEMIA [None]
  - BLOOD ALKALINE PHOSPHATASE INCREASED [None]
  - BLOOD GLUCOSE INCREASED [None]
  - DYSURIA [None]
  - FALL [None]
  - FATIGUE [None]
  - HYPOKALAEMIA [None]
  - NAUSEA [None]
  - NEUTROPENIA [None]
  - PAIN [None]
  - PLATELET COUNT DECREASED [None]
  - PLATELET COUNT INCREASED [None]
  - RENAL FAILURE [None]
